FAERS Safety Report 6224814-0 (Version None)
Quarter: 2009Q2

REPORT INFORMATION
  Report Type: 
  Country: None (occurrence: None)
  Receive Date: 20090612
  Receipt Date: 20090330
  Transmission Date: 20091009
  Serious: Yes (Hospitalization, Other)
  Sender: FDA-Public Use
  Company Number: US-ABBOTT-09P-163-0565420-00

PATIENT
  Sex: Female
  Weight: 113.5 kg

DRUGS (7)
  1. HUMIRA [Suspect]
     Indication: RHEUMATOID ARTHRITIS
     Route: 058
     Dates: start: 20040401, end: 20060101
  2. HUMIRA [Suspect]
     Route: 058
     Dates: start: 20060101, end: 20070101
  3. HUMIRA [Suspect]
     Dosage: HUMIRA PEN THERAPY- WEEKLY
     Route: 050
     Dates: start: 20090101, end: 20090312
  4. LEVAQUIN [Suspect]
     Indication: INFECTION
     Dates: start: 20060106, end: 20060131
  5. PREDNISONE [Suspect]
     Indication: RHEUMATOID ARTHRITIS
     Dates: start: 20030101, end: 20060101
  6. NOVOLOG [Concomitant]
     Indication: DIABETES MELLITUS
     Route: 058
     Dates: start: 20030101
  7. LANTUS [Concomitant]
     Indication: DIABETES MELLITUS
     Route: 058
     Dates: start: 20030101

REACTIONS (8)
  - ABASIA [None]
  - BLISTER [None]
  - DRUG INEFFECTIVE [None]
  - DYSPNOEA [None]
  - LOCALISED INFECTION [None]
  - MYALGIA [None]
  - SWELLING [None]
  - TENDON RUPTURE [None]
